FAERS Safety Report 12266554 (Version 1)
Quarter: 2016Q2

REPORT INFORMATION
  Report Type: Spontaneous
  Country: US (occurrence: None)
  Receive Date: 20160413
  Receipt Date: 20160413
  Transmission Date: 20160815
  Serious: No
  Sender: FDA-Public Use
  Company Number: None

PATIENT
  Age: 56 Year
  Sex: Male
  Weight: 112.95 kg

DRUGS (6)
  1. GABAPENTIN. [Suspect]
     Active Substance: GABAPENTIN
     Indication: BACK PAIN
     Dosage: 300MG 1 PILL 3 TIMES DAILY 2 PILLS AFTER 7 DAYS BY MOUTH
     Route: 048
     Dates: start: 20160322, end: 20160322
  2. SALSALATE. [Concomitant]
     Active Substance: SALSALATE
  3. METHOCARBAMOL. [Concomitant]
     Active Substance: METHOCARBAMOL
  4. FISH OIL [Concomitant]
     Active Substance: FISH OIL
  5. AMITRIPTYLINE [Concomitant]
     Active Substance: AMITRIPTYLINE
  6. OMEPRAZOLE. [Concomitant]
     Active Substance: OMEPRAZOLE

REACTIONS (8)
  - Nausea [None]
  - Dyspnoea [None]
  - Hypophagia [None]
  - Disorientation [None]
  - Tremor [None]
  - Eye movement disorder [None]
  - Dysarthria [None]
  - Dizziness [None]

NARRATIVE: CASE EVENT DATE: 20160322
